FAERS Safety Report 7889244-4 (Version None)
Quarter: 2011Q4

REPORT INFORMATION
  Report Type: 
  Country: None (occurrence: None)
  Receive Date: 20111103
  Receipt Date: 20111025
  Transmission Date: 20120403
  Serious: Yes (Disabling)
  Sender: FDA-Public Use
  Company Number: US-MERCK-1109USA03307

PATIENT
  Age: 51 Year
  Sex: Female

DRUGS (4)
  1. VYTORIN [Suspect]
     Route: 048
     Dates: start: 20100101
  2. NABUMETONE [Concomitant]
     Route: 065
  3. CYMBALTA [Concomitant]
     Route: 065
  4. VYTORIN [Suspect]
     Indication: BLOOD CHOLESTEROL
     Route: 048
     Dates: start: 20041201, end: 20091208

REACTIONS (6)
  - BEDRIDDEN [None]
  - FALL [None]
  - ASTHENIA [None]
  - JOINT INSTABILITY [None]
  - MENTAL IMPAIRMENT [None]
  - DEPRESSION [None]
